FAERS Safety Report 17091886 (Version 2)
Quarter: 2020Q1

REPORT INFORMATION
  Report Type: Spontaneous
  Country: GB (occurrence: GB)
  Receive Date: 20191129
  Receipt Date: 20200226
  Transmission Date: 20200409
  Serious: Yes (Life-Threatening, Hospitalization)
  Sender: FDA-Public Use
  Company Number: GB-ROCHE-2479399

PATIENT
  Age: 53 Year
  Sex: Female
  Weight: 109 kg

DRUGS (7)
  1. CAPECITABINE. [Suspect]
     Active Substance: CAPECITABINE
     Indication: BREAST CANCER METASTATIC
     Route: 048
     Dates: start: 20191023, end: 20191025
  2. CLONIDINE. [Concomitant]
     Active Substance: CLONIDINE
  3. RAMIPRIL. [Concomitant]
     Active Substance: RAMIPRIL
  4. LEVOTHYROXINE SODIUM. [Concomitant]
     Active Substance: LEVOTHYROXINE SODIUM
  5. ADCAL [CALCIUM CARBONATE] [Concomitant]
  6. EXEMESTANE. [Concomitant]
     Active Substance: EXEMESTANE
  7. AMITRIPTYLINE [Concomitant]
     Active Substance: AMITRIPTYLINE

REACTIONS (9)
  - Myocardial ischaemia [Unknown]
  - Arrhythmia [Unknown]
  - Lethargy [Recovered/Resolved]
  - Cardiac arrest [Recovering/Resolving]
  - Feeling abnormal [Unknown]
  - Arteriospasm coronary [Unknown]
  - Chest pain [Recovered/Resolved]
  - Tachycardia [Recovered/Resolved]
  - Dyspnoea [Recovered/Resolved]

NARRATIVE: CASE EVENT DATE: 20191025
